FAERS Safety Report 20769852 (Version 1)
Quarter: 2022Q2

REPORT INFORMATION
  Report Type: Report from Study
  Country: DE (occurrence: DE)
  Receive Date: 20220429
  Receipt Date: 20220429
  Transmission Date: 20220720
  Serious: Yes (Death)
  Sender: FDA-Public Use
  Company Number: DE-INSMED, INC.-2021-10362-DE

PATIENT
  Age: 36 Year
  Sex: Male

DRUGS (1)
  1. ARIKAYCE [Suspect]
     Active Substance: AMIKACIN
     Indication: Tuberculosis
     Dosage: 590 MILLIGRAM, QD
     Route: 055
     Dates: start: 20211206

REACTIONS (2)
  - Death [Fatal]
  - Off label use [Unknown]

NARRATIVE: CASE EVENT DATE: 20220101
